FAERS Safety Report 8475368-X (Version None)
Quarter: 2012Q2

REPORT INFORMATION
  Report Type: 
  Country: None (occurrence: None)
  Receive Date: 20120628
  Receipt Date: 20120622
  Transmission Date: 20120825
  Serious: Yes (Disabling, Other)
  Sender: FDA-Public Use
  Company Number: US-CELGENEUS-163-21880-12061017

PATIENT
  Sex: Male

DRUGS (4)
  1. REVLIMID [Suspect]
     Dosage: 25 MILLIGRAM
     Route: 048
     Dates: start: 20120601
  2. REVLIMID [Suspect]
     Indication: MULTIPLE MYELOMA
     Dosage: 25 MILLIGRAM
     Route: 048
     Dates: start: 20110301
  3. REVLIMID [Suspect]
     Dosage: 5 MILLIGRAM
     Route: 048
     Dates: start: 20120615
  4. VELCADE [Concomitant]
     Indication: MULTIPLE MYELOMA
     Dosage: 25 MILLIGRAM
     Route: 041
     Dates: start: 20110301

REACTIONS (1)
  - RENAL FAILURE CHRONIC [None]
